FAERS Safety Report 8968095 (Version 5)
Quarter: 2013Q4

REPORT INFORMATION
  Report Type: Spontaneous
  Country: US (occurrence: US)
  Receive Date: 20121218
  Receipt Date: 20131113
  Transmission Date: 20140711
  Serious: Yes (Other)
  Sender: FDA-Public Use
  Company Number: US-PFIZER INC-2012317751

PATIENT
  Age: 73 Year
  Sex: Male
  Weight: 103 kg

DRUGS (30)
  1. SUTENT [Suspect]
     Indication: METASTATIC RENAL CELL CARCINOMA
     Dosage: 50 MG, DAILY, 4 WEEKS ON, 2 WEEKS OFF
     Route: 048
     Dates: start: 20120726, end: 20121031
  2. SUTENT [Suspect]
     Dosage: 37.5 MG, DAILY, 4 WEEKS ON, 2 WEEKS OFF
     Route: 048
     Dates: start: 20121031, end: 20121210
  3. SUTENT [Suspect]
     Dosage: 25 MG, DAILY, 4 WEEKS ON, 2 WEEKS OFF
     Route: 048
     Dates: start: 20121210, end: 20130503
  4. AFINITOR [Suspect]
     Dosage: 10 MG, 1X/DAY (DAILY)
     Route: 048
     Dates: start: 20130517
  5. LEVOTHYROXINE [Concomitant]
     Indication: THYROID DISORDER
     Dosage: 0.05 MG, DAILY
  6. LEVOTHYROXINE [Concomitant]
     Dosage: 50 UG, DAILY
     Route: 048
  7. ADVIL [Concomitant]
     Dosage: UNK
     Dates: start: 20120706
  8. CITALOPRAM [Concomitant]
     Dosage: UNK
     Dates: start: 20120706
  9. COUMADINE [Concomitant]
     Indication: PULMONARY EMBOLISM
     Dosage: UNK
  10. ALBUTEROL SULFATE/IPRATROPIUM BROMIDE [Concomitant]
     Dosage: 3 ML, UNK
  11. ASPIRIN [Concomitant]
     Dosage: 81 MG, DAILY
     Route: 048
  12. LIPITOR [Concomitant]
     Dosage: 10 MG, (QHS)
     Route: 048
  13. ENOXAPARIN [Concomitant]
     Dosage: (90MG 0.9ML)
     Route: 058
  14. LEXAPRO [Concomitant]
     Dosage: 10 MG, DAILY
     Route: 048
  15. FLUTICASONE [Concomitant]
     Dosage: 0.1 MG, 2X/DAY (0.1 MG 2 SPRAY(S) NASAL DAILY )
     Route: 045
  16. ADVAIR [Concomitant]
     Dosage: 115 MCG-21 MCG/INH (2 PUFFS INH BID )
  17. MUCINEX [Concomitant]
     Dosage: 600 MG, 2X/DAY
     Route: 048
  18. SOLU-MEDROL [Concomitant]
     Dosage: (60 MG 0.96 ML IV Q8H )
     Route: 042
  19. OXYMETAZOLINE [Concomitant]
     Dosage: UNK
     Route: 045
  20. PROTONIX [Concomitant]
     Dosage: 40 MG, DAILY (40 MG IV PUSH DAILY )
     Route: 042
  21. WARFARIN [Concomitant]
     Dosage: 2 MG, (2 MG PO QMWF )
     Route: 048
  22. WARFARIN [Concomitant]
     Dosage: 1.25 MG, ( 1.25 MG PO OSTTHS )
     Route: 048
  23. TYLENOL [Concomitant]
     Dosage: 650 MG, AS NEEDED (650 MG PO Q4H PRN)
     Route: 048
  24. ALBUTEROL [Concomitant]
     Indication: WHEEZING
     Dosage: (2.5 MG 3 ML SVN Q2H PRN)
  25. XANAX [Concomitant]
     Indication: ANXIETY
     Dosage: 0.5 MG, (0.5 MG P0 TID PRN)
     Route: 048
  26. SENOKOT-S [Concomitant]
     Indication: CONSTIPATION
     Dosage: (1 TAB P0 BID PRN)
     Route: 048
  27. MORPHINE [Concomitant]
     Indication: CHEST PAIN
     Dosage: (2 MG  1ML IV PUSH Q5MIN PRN)
     Route: 042
  28. NITROSTAT [Concomitant]
     Indication: CHEST PAIN
     Dosage: 0.4 MG, (0.4 MG SL Q5MIN PRN)
  29. ZOFRAN [Concomitant]
     Indication: NAUSEA
     Dosage: (4 MG 2 ML IV PUSH 06H PRN)
  30. ZOFRAN [Concomitant]
     Indication: VOMITING

REACTIONS (15)
  - Cerebrovascular accident [Recovered/Resolved]
  - Atrial fibrillation [Recovered/Resolved]
  - Mucosal inflammation [Not Recovered/Not Resolved]
  - Nasal inflammation [Not Recovered/Not Resolved]
  - Mouth ulceration [Unknown]
  - Oral fungal infection [Unknown]
  - Skin disorder [Unknown]
  - Blood creatinine increased [Recovered/Resolved]
  - Blood folate decreased [Unknown]
  - Blood thyroid stimulating hormone increased [Unknown]
  - Pain in extremity [Recovering/Resolving]
  - Oropharyngeal pain [Unknown]
  - Disease progression [Unknown]
  - Renal cancer [Unknown]
  - Rash [Recovered/Resolved]
